FAERS Safety Report 6802114-5 (Version None)
Quarter: 2010Q2

REPORT INFORMATION
  Report Type: 
  Country: None (occurrence: None)
  Receive Date: 20100629
  Receipt Date: 20080206
  Transmission Date: 20101027
  Serious: No
  Sender: FDA-Public Use
  Company Number: US-PFIZER INC-2003038747

PATIENT
  Sex: Male
  Weight: 62.6 kg

DRUGS (2)
  1. VIAGRA [Suspect]
     Indication: ERECTILE DYSFUNCTION
     Route: 048
     Dates: start: 19970101
  2. COUMADIN [Concomitant]
     Indication: THROMBOSIS
     Dates: start: 19960101

REACTIONS (4)
  - ADVERSE EVENT [None]
  - DRUG INEFFECTIVE [None]
  - PRODUCT QUALITY ISSUE [None]
  - THERAPEUTIC RESPONSE DELAYED [None]
